FAERS Safety Report 7354584-4 (Version None)
Quarter: 2011Q1

REPORT INFORMATION
  Report Type: 
  Country: None (occurrence: None)
  Receive Date: 20110316
  Receipt Date: 20110218
  Transmission Date: 20110831
  Serious: Yes (Other)
  Sender: FDA-Public Use
  Company Number: NL-BAYER-200821771GPV

PATIENT
  Sex: Male

DRUGS (21)
  1. NEXAVAR [Suspect]
     Indication: HEPATIC NEOPLASM MALIGNANT
     Dosage: UNK UNK, UNK
     Route: 048
     Dates: start: 20080625
  2. PRIMPERAN TAB [Concomitant]
     Indication: NAUSEA
     Route: 054
     Dates: end: 20090108
  3. METHYLPHENIDATE HCL [Concomitant]
     Indication: DISTURBANCE IN ATTENTION
     Route: 048
  4. INFLUENZA VACCINE [Concomitant]
  5. OMEPRAZOLE [Concomitant]
     Indication: PROPHYLAXIS
     Route: 048
  6. AMLODIPINE [Concomitant]
     Indication: HYPERTENSION
     Route: 048
  7. NEXAVAR [Suspect]
     Dosage: 200 MG, QD
     Route: 048
     Dates: start: 20080704, end: 20080101
  8. NEXAVAR [Suspect]
     Route: 048
     Dates: start: 20080101, end: 20080909
  9. NEXAVAR [Suspect]
     Route: 048
     Dates: start: 20080909, end: 20080923
  10. NEXAVAR [Suspect]
     Dosage: 400 MG, BID
     Route: 048
     Dates: start: 20081010, end: 20100115
  11. ASASANTIN [Concomitant]
     Indication: CEREBROVASCULAR ACCIDENT PROPHYLAXIS
     Route: 048
     Dates: start: 20080506
  12. FENTANYL [Concomitant]
     Indication: PAIN
     Route: 062
     Dates: end: 20090108
  13. NEXAVAR [Suspect]
     Dosage: 1DD 1 TABLET AND 1DD 2 TABLETS
     Route: 048
     Dates: start: 20080923, end: 20081010
  14. NEXAVAR [Suspect]
     Dosage: ONE DAY 2 TAB. BID AND THE OTHER DAY 2 TAB. IN THE MORNING AND 3 TAB. IN THE EVENING
     Route: 048
     Dates: start: 20100101
  15. TEMAZEPAM [Concomitant]
     Indication: INSOMNIA
     Route: 048
  16. ENALAPRIL MALEATE [Concomitant]
     Indication: HYPERTENSION
     Route: 065
  17. NEXAVAR [Suspect]
     Dosage: 2 X1.5 TABLET
     Route: 048
     Dates: start: 20080701
  18. PARACETAMOL [Concomitant]
     Indication: PAIN
     Route: 048
     Dates: end: 20090108
  19. NEXAVAR [Suspect]
     Dosage: 2 X1 TABLET
     Route: 048
     Dates: start: 20080701
  20. NEXAVAR [Suspect]
     Dosage: 2 X2 TABLET
     Route: 048
     Dates: start: 20080701
  21. MORPHINE [Concomitant]
     Indication: HEPATIC NEOPLASM MALIGNANT
     Route: 003

REACTIONS (19)
  - PRURITUS [None]
  - GLOSSODYNIA [None]
  - RASH MACULAR [None]
  - DIARRHOEA [None]
  - VOMITING [None]
  - SKIN ATROPHY [None]
  - PAIN IN EXTREMITY [None]
  - CEREBROVASCULAR ACCIDENT [None]
  - LIP PAIN [None]
  - HICCUPS [None]
  - DECREASED APPETITE [None]
  - APHASIA [None]
  - GINGIVAL BLEEDING [None]
  - FATIGUE [None]
  - INFLUENZA [None]
  - OROPHARYNGEAL DISCOMFORT [None]
  - PANOPHTHALMITIS [None]
  - RASH [None]
  - HERPES ZOSTER [None]
